FAERS Safety Report 16949924 (Version 1)
Quarter: 2019Q4

REPORT INFORMATION
  Report Type: Spontaneous
  Country: FR (occurrence: FR)
  Receive Date: 20191023
  Receipt Date: 20191023
  Transmission Date: 20200122
  Serious: Yes (Hospitalization, Other)
  Sender: FDA-Public Use
  Company Number: FR-AUROBINDO-AUR-APL-2019-068701

PATIENT
  Age: 8 Year
  Sex: Male
  Weight: 32.6 kg

DRUGS (4)
  1. PARACETAMOL [Suspect]
     Active Substance: ACETAMINOPHEN
     Indication: PYREXIA
     Dosage: UNK
     Route: 048
     Dates: start: 20181019, end: 20181026
  2. AERIUS (DESLORATADINE) [Suspect]
     Active Substance: DESLORATADINE
     Indication: TONSILLITIS
     Dosage: UNK
     Route: 048
     Dates: start: 20181022, end: 20181026
  3. AMOXICILLIN. [Suspect]
     Active Substance: AMOXICILLIN
     Indication: TONSILLITIS
     Dosage: UNK
     Route: 048
     Dates: start: 20181022, end: 20181026
  4. SOLUPRED (PREDNISOLONE METASULFOBENZOATE SODIUM) [Suspect]
     Active Substance: PREDNISOLONE SODIUM METAZOATE
     Indication: TONSILLITIS
     Dosage: UNK
     Route: 048
     Dates: start: 20181022, end: 20181026

REACTIONS (1)
  - Acute generalised exanthematous pustulosis [Recovered/Resolved]

NARRATIVE: CASE EVENT DATE: 20181019
